FAERS Safety Report 10189714 (Version 1)
Quarter: 2014Q2

REPORT INFORMATION
  Report Type: Spontaneous
  Country: US (occurrence: US)
  Receive Date: 20140522
  Receipt Date: 20140522
  Transmission Date: 20141212
  Serious: Yes (Hospitalization)
  Sender: FDA-Public Use
  Company Number: US-SA-2013SA098643

PATIENT
  Sex: Male

DRUGS (2)
  1. LANTUS SOLOSTAR [Suspect]
     Route: 065
     Dates: start: 2012
  2. SOLOSTAR [Concomitant]
     Dates: start: 2012

REACTIONS (2)
  - Blood glucose increased [Unknown]
  - Acidosis [Unknown]
